FAERS Safety Report 7932895-9 (Version None)
Quarter: 2011Q4

REPORT INFORMATION
  Report Type: 
  Country: None (occurrence: None)
  Receive Date: 20111122
  Receipt Date: 20111117
  Transmission Date: 20120403
  Serious: Yes (Hospitalization)
  Sender: FDA-Public Use
  Company Number: US-ASTELLAS-2011US004166

PATIENT
  Sex: Male

DRUGS (1)
  1. ERLOTINIB HYDROCHLORIDE [Suspect]
     Indication: LUNG NEOPLASM MALIGNANT
     Dosage: 150 MG, UID/QD
     Route: 048
     Dates: start: 20110624

REACTIONS (5)
  - PAIN IN EXTREMITY [None]
  - MENTAL STATUS CHANGES [None]
  - GASTROINTESTINAL HAEMORRHAGE [None]
  - ARTHRALGIA [None]
  - MYALGIA [None]
